FAERS Safety Report 5924166-7 (Version None)
Quarter: 2008Q3

REPORT INFORMATION
  Report Type: 
  Country: None (occurrence: None)
  Receive Date: 20080909
  Receipt Date: 20071220
  Transmission Date: 20090109
  Serious: Yes (Hospitalization)
  Sender: FDA-Public Use
  Company Number: 163-20785-07121189

PATIENT
  Age: 61 Year
  Sex: Male

DRUGS (2)
  1. THALOMID [Suspect]
     Indication: MULTIPLE MYELOMA
     Dosage: 50 MG, 1 IN1 D, ORAL; 100 MG, DAILY, ORAL
     Route: 048
     Dates: start: 20060324, end: 20060731
  2. THALOMID [Suspect]
     Indication: MULTIPLE MYELOMA
     Dosage: 50 MG, 1 IN1 D, ORAL; 100 MG, DAILY, ORAL
     Route: 048
     Dates: start: 20060920

REACTIONS (1)
  - MENTAL STATUS CHANGES [None]
